FAERS Safety Report 25581286 (Version 1)
Quarter: 2025Q3

REPORT INFORMATION
  Report Type: Spontaneous
  Country: US (occurrence: US)
  Receive Date: 20250718
  Receipt Date: 20250718
  Transmission Date: 20251020
  Serious: No
  Sender: NOVO NORDISK
  Company Number: US-NOVOPROD-1372476

PATIENT
  Sex: Female
  Weight: 182 kg

DRUGS (2)
  1. WEGOVY [Suspect]
     Active Substance: SEMAGLUTIDE
     Route: 058
     Dates: start: 20240927
  2. WEGOVY [Suspect]
     Active Substance: SEMAGLUTIDE
     Indication: Product used for unknown indication
     Route: 058
     Dates: start: 20240514

REACTIONS (3)
  - Hunger [Unknown]
  - Weight loss poor [Unknown]
  - Drug ineffective [Unknown]
